FAERS Safety Report 5579976-5 (Version None)
Quarter: 2008Q1

REPORT INFORMATION
  Report Type: 
  Country: None (occurrence: None)
  Receive Date: 20080103
  Receipt Date: 20071226
  Transmission Date: 20080703
  Serious: Yes (Life-Threatening, Hospitalization)
  Sender: FDA-Public Use
  Company Number: PHHO2007US21153

PATIENT
  Age: 42 Year
  Sex: Female

DRUGS (2)
  1. RAD [Suspect]
     Indication: HEART TRANSPLANT
     Dosage: 0.5 MG, BID
     Route: 048
     Dates: start: 20071119, end: 20071224
  2. NEORAL [Suspect]
     Indication: HEART TRANSPLANT
     Dosage: 125 MG, BID
     Route: 048
     Dates: start: 20071217

REACTIONS (6)
  - CARDIAC ARREST [None]
  - ENDOTRACHEAL INTUBATION [None]
  - FOAMING AT MOUTH [None]
  - LETHARGY [None]
  - VENTRICULAR FIBRILLATION [None]
  - WOUND DEHISCENCE [None]
